FAERS Safety Report 9914623 (Version 1)
Quarter: 2014Q1

REPORT INFORMATION
  Report Type: Spontaneous
  Country: ES (occurrence: ES)
  Receive Date: 20140220
  Receipt Date: 20140220
  Transmission Date: 20141002
  Serious: Yes (Death, Other)
  Sender: FDA-Public Use
  Company Number: PHHY2014ES020059

PATIENT
  Age: 78 Year
  Sex: Female

DRUGS (4)
  1. LETROZOLE [Suspect]
     Indication: INFLAMMATORY CARCINOMA OF THE BREAST
     Dosage: 2.5 MG, PER DAY
  2. LETROZOLE [Suspect]
     Dosage: 2.5 MG, PER DAY
     Dates: start: 200701
  3. CAPECITABINE [Suspect]
     Indication: PLEURAL NEOPLASM
     Dates: start: 201005
  4. VINORELBINE [Suspect]
     Indication: PLEURAL NEOPLASM

REACTIONS (10)
  - Death [Fatal]
  - Pleural neoplasm [Unknown]
  - Skin toxicity [Unknown]
  - Skin ulcer [Unknown]
  - Radiation skin injury [Unknown]
  - Skin tightness [Unknown]
  - Skin burning sensation [Unknown]
  - Skin discolouration [Unknown]
  - Pleural effusion [Unknown]
  - Metastases to liver [Unknown]
